FAERS Safety Report 10443679 (Version 2)
Quarter: 2014Q3

REPORT INFORMATION
  Report Type: Spontaneous
  Country: US (occurrence: US)
  Receive Date: 20140910
  Receipt Date: 20140910
  Transmission Date: 20150326
  Serious: No
  Sender: FDA-Public Use
  Company Number: US-SHIRE-20130624CINRY4473

PATIENT
  Sex: Female
  Weight: 58.5 kg

DRUGS (4)
  1. CINRYZE [Suspect]
     Active Substance: HUMAN C1-ESTERASE INHIBITOR
     Indication: PROPHYLAXIS
     Dosage: UNK (1000 UNITS), OTHER (EVERY 3 DAYS)
     Route: 042
     Dates: start: 2006, end: 2010
  2. CINRYZE [Suspect]
     Active Substance: HUMAN C1-ESTERASE INHIBITOR
     Dosage: UNK (1000 INITS), QOD (EVERY 2 DAYS)
     Route: 042
     Dates: start: 20100414
  3. PROCARDIA [Concomitant]
     Active Substance: NIFEDIPINE
     Indication: PRODUCT USED FOR UNKNOWN INDICATION
     Dosage: 10 MG, 3X/DAY:TID
     Route: 048
     Dates: start: 20140109, end: 20140217
  4. CINRYZE [Suspect]
     Active Substance: HUMAN C1-ESTERASE INHIBITOR
     Indication: HEREDITARY ANGIOEDEMA
     Dosage: UNK (1000 TO 1500 UNITS), OTHER (EVERY 2-3 DAYS AS NEEDED)
     Route: 042

REACTIONS (8)
  - Dehydration [Unknown]
  - Inappropriate schedule of drug administration [Not Recovered/Not Resolved]
  - Off label use [Not Recovered/Not Resolved]
  - Malaise [Unknown]
  - Hereditary angioedema [Not Recovered/Not Resolved]
  - Nausea [Unknown]
  - Therapy change [Not Recovered/Not Resolved]
  - Exposure during pregnancy [Recovered/Resolved]

NARRATIVE: CASE EVENT DATE: 2013
